FAERS Safety Report 16827553 (Version 1)
Quarter: 2019Q3

REPORT INFORMATION
  Report Type: Report from Study
  Country: US (occurrence: US)
  Receive Date: 20190919
  Receipt Date: 20190919
  Transmission Date: 20191005
  Serious: Yes (Other)
  Sender: FDA-Public Use
  Company Number: US-MYLANLABS-2019M1088361

PATIENT
  Age: 53 Year
  Sex: Female

DRUGS (3)
  1. PREDNISONE. [Suspect]
     Active Substance: PREDNISONE
     Indication: PULMONARY SARCOIDOSIS
     Dosage: 30 MILLIGRAM, QD
     Route: 065
  2. PREDNISONE. [Suspect]
     Active Substance: PREDNISONE
     Indication: CARDIAC SARCOIDOSIS
     Route: 065
  3. MEXILETINE [Concomitant]
     Active Substance: MEXILETINE
     Indication: VENTRICULAR ARRHYTHMIA
     Route: 065

REACTIONS (1)
  - Ventricular extrasystoles [Recovered/Resolved]
